FAERS Safety Report 15637251 (Version 3)
Quarter: 2019Q4

REPORT INFORMATION
  Report Type: Report from Study
  Country: US (occurrence: US)
  Receive Date: 20181120
  Receipt Date: 20191204
  Transmission Date: 20200122
  Serious: Yes (Life-Threatening)
  Sender: FDA-Public Use
  Company Number: US-IPSEN BIOPHARMACEUTICALS, INC.-2017-16304

PATIENT
  Age: 11 Year
  Sex: Male
  Weight: 33.5 kg

DRUGS (42)
  1. DYSPORT [Suspect]
     Active Substance: ABOBOTULINUMTOXINA
     Indication: OFF LABEL USE
  2. MELATONIN [Concomitant]
     Active Substance: MELATONIN
     Indication: SLEEP DISORDER
  3. FUROSEMIDE. [Concomitant]
     Active Substance: FUROSEMIDE
     Indication: HYPOTENSION
     Route: 042
     Dates: start: 20190914, end: 20190919
  4. TOBRAMYCIN NEBS [Concomitant]
     Active Substance: TOBRAMYCIN
     Indication: RESPIRATORY TRACT INFECTION
     Dates: start: 20190924, end: 20191004
  5. DYSPORT [Suspect]
     Active Substance: ABOBOTULINUMTOXINA
     Indication: MUSCLE SPASTICITY
  6. VALPROIC ACID. [Concomitant]
     Active Substance: VALPROIC ACID
     Indication: SEIZURE
  7. PACKED RED BLOOD CELLS [Concomitant]
     Active Substance: HUMAN RED BLOOD CELL
     Indication: HYPOTENSION
     Dosage: 1 UNIT
     Route: 042
     Dates: start: 20190912, end: 20190912
  8. BISACODYL. [Concomitant]
     Active Substance: BISACODYL
     Indication: CONSTIPATION
     Route: 054
  9. GLYCOPYRROLATE. [Concomitant]
     Active Substance: GLYCOPYRROLATE
     Indication: SKIN IRRITATION
  10. ALBUMIN [Concomitant]
     Active Substance: ALBUMIN HUMAN
     Indication: HYPOTENSION
     Dosage: 250 ML
     Dates: start: 20190912, end: 20190919
  11. SENNE [Concomitant]
     Indication: CONSTIPATION
     Route: 048
     Dates: start: 20190916
  12. DOPAMINE [Concomitant]
     Active Substance: DOPAMINE HYDROCHLORIDE
     Indication: HYPOTENSION
     Route: 042
     Dates: start: 20190912, end: 20190914
  13. HYDROMORPHONE [Concomitant]
     Active Substance: HYDROMORPHONE
     Indication: POSTOPERATIVE ANALGESIA
     Route: 042
     Dates: start: 20190912, end: 20190912
  14. HYDROCORTISONE. [Concomitant]
     Active Substance: HYDROCORTISONE
     Indication: CORTISOL DECREASED
     Route: 042
     Dates: start: 20190913, end: 20190923
  15. FISH OIL [Concomitant]
     Active Substance: FISH OIL
     Indication: NUTRITIONAL SUPPLEMENTATION
     Route: 048
  16. ACETAMINOPHEN. [Concomitant]
     Active Substance: ACETAMINOPHEN
     Indication: PAIN
  17. SYMBICORT [Concomitant]
     Active Substance: BUDESONIDE\FORMOTEROL FUMARATE DIHYDRATE
     Indication: LUNG DISORDER
  18. FELBAMATE. [Concomitant]
     Active Substance: FELBAMATE
     Indication: SEIZURE
  19. CLONAZEPAM. [Concomitant]
     Active Substance: CLONAZEPAM
     Indication: SEIZURE
     Dates: end: 20180731
  20. LORAZEPAM. [Concomitant]
     Active Substance: LORAZEPAM
     Dosage: ROUTE-G-TUBE
  21. CIPROFLOXACIN. [Concomitant]
     Active Substance: CIPROFLOXACIN
     Indication: RESPIRATORY TRACT INFECTION
     Dates: start: 20190920, end: 20190930
  22. EURICIN [Concomitant]
     Indication: SKIN IRRITATION
     Route: 061
  23. LORATADINE. [Concomitant]
     Active Substance: LORATADINE
     Indication: HYPERSENSITIVITY
     Dates: start: 2019
  24. LORAZEPAM. [Concomitant]
     Active Substance: LORAZEPAM
     Indication: SEIZURE
  25. TOBRAMYCIN. [Concomitant]
     Active Substance: TOBRAMYCIN
     Indication: RESTRICTIVE PULMONARY DISEASE
  26. PULMICORT TURBUHALER [Concomitant]
     Active Substance: BUDESONIDE
     Indication: RESTRICTIVE PULMONARY DISEASE
  27. ALBUTEROL. [Concomitant]
     Active Substance: ALBUTEROL
     Indication: RESTRICTIVE PULMONARY DISEASE
  28. ACETAZOLAMIDE. [Concomitant]
     Active Substance: ACETAZOLAMIDE
     Indication: ALKALOSIS HYPOCHLORAEMIC
     Route: 042
     Dates: start: 20190918, end: 20190919
  29. BACTROBAN [Concomitant]
     Active Substance: MUPIROCIN\MUPIROCIN CALCIUM
     Indication: ANTIBIOTIC PROPHYLAXIS
     Route: 061
     Dates: start: 201909
  30. MIRALAX [Concomitant]
     Active Substance: POLYETHYLENE GLYCOL 3350
     Indication: CONSTIPATION
  31. DYSPORT [Suspect]
     Active Substance: ABOBOTULINUMTOXINA
     Indication: MUSCLE SPASTICITY
  32. DIAZEPAM. [Concomitant]
     Active Substance: DIAZEPAM
     Indication: SEIZURE
     Route: 054
     Dates: end: 20190916
  33. DIAZEPAM. [Concomitant]
     Active Substance: DIAZEPAM
     Dates: start: 20190916
  34. PREDNISOLONE. [Concomitant]
     Active Substance: PREDNISOLONE
     Indication: RESTRICTIVE PULMONARY DISEASE
  35. LEVOCARNITINE. [Concomitant]
     Active Substance: LEVOCARNITINE
     Indication: NUTRITIONAL SUPPLEMENTATION
     Dates: start: 20190508
  36. RANITIDINE. [Concomitant]
     Active Substance: RANITIDINE
     Indication: GASTROOESOPHAGEAL REFLUX DISEASE
     Dates: start: 20190916
  37. DYSPORT [Suspect]
     Active Substance: ABOBOTULINUMTOXINA
     Indication: MUSCLE SPASTICITY
     Dosage: 1000 UNITS
     Route: 030
     Dates: start: 20171107, end: 20171107
  38. AZITHROMYCIN ANHYDROUS. [Concomitant]
     Active Substance: AZITHROMYCIN ANHYDROUS
     Indication: RESTRICTIVE PULMONARY DISEASE
  39. EPHEDRINE. [Concomitant]
     Active Substance: EPHEDRINE
     Indication: HYPOVOLAEMIC SHOCK
     Route: 042
     Dates: start: 20190912, end: 20190912
  40. MULTIVITAMIN (POLYVITE DROPS) [Concomitant]
     Indication: NUTRITIONAL SUPPLEMENTATION
  41. CLOBAZAM. [Concomitant]
     Active Substance: CLOBAZAM
     Indication: SEIZURE
  42. OXYCODONE [Concomitant]
     Active Substance: OXYCODONE
     Indication: PAIN MANAGEMENT
     Dates: start: 20190916

REACTIONS (12)
  - Condition aggravated [Unknown]
  - Lower respiratory tract infection [Recovered/Resolved]
  - Hypotension [Recovered/Resolved]
  - Scoliosis [Unknown]
  - Tracheobronchitis [Not Recovered/Not Resolved]
  - Hypovolaemic shock [Recovered/Resolved]
  - Gastrointestinal disorder [Unknown]
  - Adrenal insufficiency [Recovered/Resolved]
  - Alkalosis hypochloraemic [Recovered/Resolved]
  - Respiratory failure [Recovered/Resolved]
  - Off label use [Unknown]
  - Cortisol decreased [Recovered/Resolved]

NARRATIVE: CASE EVENT DATE: 20171107
